FAERS Safety Report 9565843 (Version 1)
Quarter: 2013Q3

REPORT INFORMATION
  Report Type: Spontaneous
  Country: GB (occurrence: GB)
  Receive Date: 20130930
  Receipt Date: 20130930
  Transmission Date: 20140515
  Serious: Yes (Other)
  Sender: FDA-Public Use
  Company Number: PHHY2013GB106077

PATIENT
  Age: 83 Year
  Sex: Male

DRUGS (2)
  1. CLINDAMYCIN [Suspect]
     Indication: INFECTION
  2. RIFAMPICIN [Suspect]
     Indication: INFECTION

REACTIONS (3)
  - Acute generalised exanthematous pustulosis [Unknown]
  - Pyrexia [Unknown]
  - Rash pustular [Unknown]
